FAERS Safety Report 7956784-9 (Version None)
Quarter: 2011Q4

REPORT INFORMATION
  Report Type: 
  Country: None (occurrence: None)
  Receive Date: 20111205
  Receipt Date: 20110906
  Transmission Date: 20120403
  Serious: No
  Sender: FDA-Public Use
  Company Number: US-BAYER-2011-088913

PATIENT
  Sex: Male

DRUGS (5)
  1. IBUPROFEN (ADVIL) [Concomitant]
  2. HERBAL PREPARATION [Concomitant]
  3. ALCOHOL [Interacting]
  4. ALEVE (CAPLET) [Suspect]
     Indication: BURNING SENSATION
     Dosage: 4 DF, UNK
  5. ALEVE (CAPLET) [Interacting]
     Indication: MUSCLE TIGHTNESS

REACTIONS (3)
  - BURNING SENSATION [None]
  - DISTURBANCE IN ATTENTION [None]
  - NO ADVERSE EVENT [None]
